FAERS Safety Report 21054502 (Version 1)
Quarter: 2022Q3

REPORT INFORMATION
  Report Type: Spontaneous
  Country: CN (occurrence: None)
  Receive Date: 20220707
  Receipt Date: 20220707
  Transmission Date: 20221026
  Serious: Yes (Hospitalization)
  Sender: FDA-Public Use
  Company Number: 2022A228522

PATIENT
  Age: 80 Year
  Sex: Male

DRUGS (2)
  1. IMFINZI [Suspect]
     Active Substance: DURVALUMAB
     Indication: Small cell lung cancer
     Route: 042
  2. ANTI-ANGIOGENIC [Concomitant]

REACTIONS (1)
  - Malignant neoplasm progression [Not Recovered/Not Resolved]
